FAERS Safety Report 9842767 (Version 4)
Quarter: 2014Q2

REPORT INFORMATION
  Report Type: Report from Study
  Country: JP (occurrence: JP)
  Receive Date: 20140124
  Receipt Date: 20140606
  Transmission Date: 20141212
  Serious: Yes (Death, Hospitalization)
  Sender: FDA-Public Use
  Company Number: JP-009507513-1401JPN010549

PATIENT
  Age: 69 Year
  Sex: Male

DRUGS (3)
  1. CANCIDAS FOR INTRAVENOUS DRIP INFUSION 70MG [Suspect]
     Indication: SYSTEMIC CANDIDA
     Dosage: 70 MG, ONCE
     Route: 041
     Dates: start: 20130928, end: 20130928
  2. CANCIDAS FOR INTRAVENOUS DRIP INFUSION 50MG [Suspect]
     Indication: SYSTEMIC CANDIDA
     Dosage: 35 MG, QD
     Route: 041
     Dates: start: 20130929, end: 20131024
  3. CEFMETAZON [Concomitant]
     Indication: SYSTEMIC CANDIDA
     Dosage: 0.5 G, TID
     Route: 051
     Dates: start: 20131003, end: 20131115

REACTIONS (1)
  - Disease progression [Fatal]
